FAERS Safety Report 7795389-X (Version None)
Quarter: 2011Q3

REPORT INFORMATION
  Report Type: 
  Country: None (occurrence: None)
  Receive Date: 20110930
  Receipt Date: 20110908
  Transmission Date: 20111222
  Serious: Yes (Other)
  Sender: FDA-Public Use
  Company Number: JPI-P-017001

PATIENT
  Age: 55 Year
  Sex: Male
  Weight: 89.8122 kg

DRUGS (12)
  1. XYREM [Suspect]
     Indication: CATAPLEXY
     Dosage: 4.5 GM (2.25 GM 2 IN 1 D), ORAL, 9 GM (4.5 GM, 2 IN 1 D(, ORAL
     Route: 048
     Dates: start: 20030323
  2. XYREM [Suspect]
     Indication: CATAPLEXY
     Dosage: 4.5 GM (2.25 GM 2 IN 1 D), ORAL, 9 GM (4.5 GM, 2 IN 1 D(, ORAL
     Route: 048
     Dates: start: 20030113
  3. CLONAZEPAM [Concomitant]
  4. AMLODIPINE [Concomitant]
  5. IMIPRAMINE [Concomitant]
  6. AMPHETAMINE AND DEXTROAMPHETAMINE SALTS [Concomitant]
  7. ATORVASTATIN CALCIUM [Concomitant]
  8. HYDROCHLOROTHIAZIDE [Concomitant]
  9. ALLOPURINOL [Concomitant]
  10. PRAMIPEXOLE DIHYDROCHLORIDE [Concomitant]
  11. DOXAZOSIN MESYLATE [Concomitant]
  12. FLUOXETINE [Concomitant]

REACTIONS (3)
  - KNEE OPERATION [None]
  - EAR OPERATION [None]
  - SLEEP APNOEA SYNDROME [None]
